FAERS Safety Report 8427641-9 (Version None)
Quarter: 2012Q2

REPORT INFORMATION
  Report Type: 
  Country: None (occurrence: None)
  Receive Date: 20120611
  Receipt Date: 20120608
  Transmission Date: 20120825
  Serious: Yes (Other)
  Sender: FDA-Public Use
  Company Number: US-PFIZER INC-2006019382

PATIENT
  Sex: Male
  Weight: 108.86 kg

DRUGS (5)
  1. NARDIL [Suspect]
     Indication: DEPRESSION
     Dosage: 6 EVERY 1 DAYS
     Route: 065
     Dates: start: 19850101
  2. CLONOPIN [Concomitant]
     Route: 065
  3. ABILIFY [Suspect]
     Dosage: UNK
  4. LITHIUM [Concomitant]
     Route: 065
  5. NARDIL [Suspect]
     Dosage: UNK
     Dates: start: 20030101

REACTIONS (12)
  - DIARRHOEA [None]
  - DEPRESSION [None]
  - ABNORMAL DREAMS [None]
  - DRUG INEFFECTIVE [None]
  - PARKINSONISM [None]
  - ANXIETY [None]
  - FEELING ABNORMAL [None]
  - TREMOR [None]
  - MUSCULOSKELETAL STIFFNESS [None]
  - PAIN IN EXTREMITY [None]
  - WEIGHT INCREASED [None]
  - MENTAL IMPAIRMENT [None]
